FAERS Safety Report 5545895-3 (Version None)
Quarter: 2007Q4

REPORT INFORMATION
  Report Type: 
  Country: None (occurrence: None)
  Receive Date: 20071211
  Receipt Date: 20071129
  Transmission Date: 20080405
  Serious: Yes (Life-Threatening, Other)
  Sender: FDA-Public Use
  Company Number: US-ASTRAZENECA-2007UW22319

PATIENT
  Age: 19 Year
  Sex: Female
  Weight: 61.4 kg

DRUGS (3)
  1. SYMBICORT [Suspect]
     Dosage: 80/4.5 UG 2 PUFFS FOR FIRST TIME
     Route: 055
     Dates: start: 20070829, end: 20070829
  2. DEPAKOTE ER [Concomitant]
     Indication: AFFECTIVE DISORDER
     Route: 048
     Dates: start: 20070619
  3. CONCERTA [Concomitant]
     Indication: ATTENTION DEFICIT/HYPERACTIVITY DISORDER
     Route: 048
     Dates: start: 20070619, end: 20070829

REACTIONS (1)
  - BRONCHOSPASM [None]
